FAERS Safety Report 23408659 (Version 1)
Quarter: 2024Q1

REPORT INFORMATION
  Report Type: Spontaneous
  Country: US (occurrence: US)
  Receive Date: 20240117
  Receipt Date: 20240117
  Transmission Date: 20240409
  Serious: No
  Sender: FDA-Public Use
  Company Number: US-SA-SAC20240111000744

PATIENT
  Age: 57 Year
  Sex: Female
  Weight: 138 kg

DRUGS (12)
  1. DUPIXENT [Suspect]
     Active Substance: DUPILUMAB
     Indication: Dermatitis atopic
     Dosage: 300MG QOW
     Route: 058
     Dates: start: 20230126
  2. ALBUTEROL SULFATE [Concomitant]
     Active Substance: ALBUTEROL SULFATE
  3. XIPAMIDE [Concomitant]
     Active Substance: XIPAMIDE
  4. MODERNA COVID-19 VACCINE [Concomitant]
     Active Substance: ELASOMERAN
  5. CERAVE ITCH RELIEF MOISTURIZING [Concomitant]
     Active Substance: PRAMOXINE HYDROCHLORIDE
  6. ZYRTEC [Concomitant]
     Active Substance: CETIRIZINE HYDROCHLORIDE
  7. MONTELUKAST SODIUM [Concomitant]
     Active Substance: MONTELUKAST SODIUM
  8. RYBELSUS [Concomitant]
     Active Substance: SEMAGLUTIDE
  9. FLUOXETINE HYDROCHLORIDE [Concomitant]
     Active Substance: FLUOXETINE HYDROCHLORIDE
  10. LISINOPRIL [Concomitant]
     Active Substance: LISINOPRIL
  11. HYDROCHLOROTHIAZIDE [Concomitant]
     Active Substance: HYDROCHLOROTHIAZIDE
  12. GLIPIZIDE\METFORMIN HYDROCHLORIDE [Concomitant]
     Active Substance: GLIPIZIDE\METFORMIN HYDROCHLORIDE

REACTIONS (8)
  - Eyelid margin crusting [Not Recovered/Not Resolved]
  - Nasopharyngitis [Unknown]
  - Eye swelling [Not Recovered/Not Resolved]
  - Ocular hyperaemia [Not Recovered/Not Resolved]
  - Eye pruritus [Not Recovered/Not Resolved]
  - Rash [Recovered/Resolved]
  - Therapeutic response shortened [Unknown]
  - Blepharitis [Unknown]
